FAERS Safety Report 9206055 (Version 1)
Quarter: 2013Q2

REPORT INFORMATION
  Report Type: Spontaneous
  Country: US (occurrence: None)
  Receive Date: 20130403
  Receipt Date: 20130403
  Transmission Date: 20140414
  Serious: Yes (Hospitalization)
  Sender: FDA-Public Use
  Company Number: None

PATIENT
  Age: 83 Year
  Sex: Male
  Weight: 68.5 kg

DRUGS (3)
  1. WARFARIN [Suspect]
     Indication: CEREBROVASCULAR ACCIDENT
     Dosage: ONE AND ONE HALF YEARS?2MG, 4 DAYS PER WEEK; PO
     Route: 048
  2. WARFARIN [Suspect]
     Dosage: ONE AND ONE HALF YEARS?2MG, 4 DAYS PER WEEK; PO
     Route: 048
  3. WARFARIN [Suspect]
     Dosage: 2.5MG; 3 DAYS PER WEEK; PO
     Route: 048

REACTIONS (3)
  - Blood urine present [None]
  - Urinary tract infection [None]
  - International normalised ratio increased [None]
